FAERS Safety Report 9405791 (Version 1)
Quarter: 2013Q3

REPORT INFORMATION
  Report Type: Spontaneous
  Country: CO (occurrence: CO)
  Receive Date: 20130717
  Receipt Date: 20130717
  Transmission Date: 20140515
  Serious: Yes (Other)
  Sender: FDA-Public Use
  Company Number: CO-009507513-1307COL007097

PATIENT
  Age: 55 Year
  Sex: Male

DRUGS (2)
  1. PEG-INTRON [Suspect]
     Dosage: 80 MICROGRAM, WEEKLY, PREFILLED PENS
     Route: 058
     Dates: start: 20130628, end: 20130705
  2. RIBAVIRIN [Suspect]
     Dosage: 800 MICROGRAM, WEEKLY
     Route: 048

REACTIONS (1)
  - Encephalopathy [Unknown]
